FAERS Safety Report 5948371-9 (Version None)
Quarter: 2008Q4

REPORT INFORMATION
  Report Type: 
  Country: None (occurrence: None)
  Receive Date: 20081110
  Receipt Date: 20081110
  Transmission Date: 20090506
  Serious: No
  Sender: FDA-Public Use
  Company Number: None

PATIENT
  Sex: Female
  Weight: 68.1 kg

DRUGS (12)
  1. DASATINIB [Suspect]
     Indication: BREAST CANCER STAGE IV
     Dosage: 70 MG BID PO
     Route: 048
     Dates: start: 20081015, end: 20081105
  2. MS CONTIN [Concomitant]
  3. VOLTAREN [Concomitant]
  4. DICLOFENAC SODIUM [Concomitant]
  5. VICODIN [Concomitant]
  6. M.V.I. [Concomitant]
  7. AMITRIPTYLINE HCL [Concomitant]
  8. ACETAMINOPHEN [Concomitant]
  9. LASIX [Concomitant]
  10. SPIRONOLACTONE [Concomitant]
  11. SOLU-MEDROL [Concomitant]
  12. DASATINIB [Suspect]

REACTIONS (6)
  - COUGH [None]
  - DYSPNOEA [None]
  - DYSPNOEA EXERTIONAL [None]
  - MALIGNANT NEOPLASM PROGRESSION [None]
  - PLEURAL EFFUSION [None]
  - PNEUMONITIS [None]
